FAERS Safety Report 12990682 (Version 1)
Quarter: 2016Q4

REPORT INFORMATION
  Report Type: Report from Study
  Country: CA (occurrence: CA)
  Receive Date: 20161201
  Receipt Date: 20161201
  Transmission Date: 20170207
  Serious: Yes (Hospitalization, Other)
  Sender: FDA-Public Use
  Company Number: CA-JNJFOC-20161126151

PATIENT
  Age: 64 Year
  Sex: Female
  Weight: 96.2 kg

DRUGS (1)
  1. REMICADE [Suspect]
     Active Substance: INFLIXIMAB
     Indication: CROHN^S DISEASE
     Route: 042
     Dates: start: 200904

REACTIONS (2)
  - Breast cancer [Unknown]
  - Kidney infection [Unknown]

NARRATIVE: CASE EVENT DATE: 20161029
